FAERS Safety Report 4399388-X (Version None)
Quarter: 2004Q2

REPORT INFORMATION
  Report Type: 
  Country: None (occurrence: None)
  Receive Date: 20040607
  Receipt Date: 20040422
  Transmission Date: 20050107
  Serious: No
  Sender: FDA-Public Use
  Company Number: US-SHR-04-024442

PATIENT
  Age: 45 Year
  Sex: Male

DRUGS (2)
  1. CAMPATH [Suspect]
     Indication: CHRONIC LYMPHOCYTIC LEUKAEMIA
     Dosage: 3/10/30MG, SUBCUTANEOUS
     Route: 058
     Dates: start: 20040412
  2. SULFAMETHOXAZOLE + TRIMETHOPRIM [Suspect]

REACTIONS (2)
  - PRURITUS [None]
  - URTICARIA [None]
